FAERS Safety Report 4572427-9 (Version None)
Quarter: 2005Q1

REPORT INFORMATION
  Report Type: 
  Country: None (occurrence: None)
  Receive Date: 20050207
  Receipt Date: 20050125
  Transmission Date: 20050727
  Serious: Yes (Other)
  Sender: FDA-Public Use
  Company Number: IE-GLAXOSMITHKLINE-B0369579A

PATIENT
  Age: 71 Year
  Sex: Male

DRUGS (3)
  1. AUGMENTIN '125' [Suspect]
     Indication: RESPIRATORY TRACT INFECTION
     Dosage: 2U PER DAY
     Route: 048
     Dates: start: 20041229, end: 20041231
  2. WARFARIN SODIUM [Suspect]
     Indication: RESPIRATORY TRACT INFECTION
     Dosage: 3MG PER DAY
     Route: 048
     Dates: start: 20041229, end: 20041231
  3. NO CONCURRENT MEDICATIONS [Concomitant]

REACTIONS (1)
  - PROTHROMBIN TIME SHORTENED [None]
